FAERS Safety Report 4352279-2 (Version None)
Quarter: 2004Q2

REPORT INFORMATION
  Report Type: 
  Country: None (occurrence: None)
  Receive Date: 20040427
  Receipt Date: 20030325
  Transmission Date: 20050107
  Serious: Yes (Life-Threatening)
  Sender: FDA-Public Use
  Company Number: 2002-101782-NL

PATIENT

DRUGS (2)
  1. ZEMURON [Suspect]
     Indication: ANAESTHESIA
     Dosage: DF DAILY
     Dates: start: 20021115, end: 20021115
  2. PROPOFOL [Concomitant]

REACTIONS (1)
  - ANAPHYLACTOID REACTION [None]
